FAERS Safety Report 9825702 (Version 1)
Quarter: 2013Q4

REPORT INFORMATION
  Report Type: Spontaneous
  Country: US (occurrence: None)
  Receive Date: 20131223
  Receipt Date: 20131223
  Transmission Date: 20140711
  Serious: Yes (Other)
  Sender: FDA-Public Use
  Company Number: 220199LEO

PATIENT
  Age: 51 Year
  Sex: Female

DRUGS (5)
  1. PICATO [Suspect]
     Indication: ACTINIC KERATOSIS
     Dosage: TOPICAL
     Route: 061
     Dates: start: 20130114, end: 20130116
  2. AZITHROMYCIN (AZITHROMYCIN) [Concomitant]
  3. ESTROGEN (ESTROGEN NOS) [Concomitant]
  4. CLARITIN (LORATADINE) [Concomitant]
  5. SINGULAIR (MONTELUKAST) 10MG [Concomitant]

REACTIONS (1)
  - Application site vesicles [None]
